FAERS Safety Report 6785803-0 (Version None)
Quarter: 2010Q2

REPORT INFORMATION
  Report Type: 
  Country: None (occurrence: None)
  Receive Date: 20100623
  Receipt Date: 20100616
  Transmission Date: 20101027
  Serious: Yes (Disabling)
  Sender: FDA-Public Use
  Company Number: GB-TEVA-238130ISR

PATIENT
  Age: 24 Year
  Sex: Male

DRUGS (5)
  1. CIPROFLOXACIN [Suspect]
     Indication: HODGKIN'S DISEASE
  2. PREDNISOLONE [Suspect]
     Indication: HODGKIN'S DISEASE
  3. ETHAMBUTOL HYDROCHLORIDE [Suspect]
     Indication: HODGKIN'S DISEASE
  4. ISONIAZID [Suspect]
     Indication: HODGKIN'S DISEASE
  5. RIFATER [Suspect]
     Indication: HODGKIN'S DISEASE

REACTIONS (5)
  - COLOUR BLINDNESS [None]
  - LIVER FUNCTION TEST ABNORMAL [None]
  - LYMPHOMA [None]
  - NAUSEA [None]
  - NEUROPATHY PERIPHERAL [None]
